FAERS Safety Report 6252192-X (Version None)
Quarter: 2009Q2

REPORT INFORMATION
  Report Type: 
  Country: None (occurrence: None)
  Receive Date: 20090629
  Receipt Date: 20090615
  Transmission Date: 20091009
  Serious: Yes (Death, Hospitalization)
  Sender: FDA-Public Use
  Company Number: 82572

PATIENT
  Age: 35 Year
  Sex: Female

DRUGS (1)
  1. NOREPINEPHRINE BITARTRATE BEDFORD LABS, INC. [Suspect]
     Dosage: 2.2MCG/KG/MIN

REACTIONS (12)
  - BLOOD LACTIC ACID INCREASED [None]
  - CARDIAC FAILURE [None]
  - CARDIOGENIC SHOCK [None]
  - CEREBRAL ARTERY EMBOLISM [None]
  - COMA [None]
  - INTESTINAL ISCHAEMIA [None]
  - MULTI-ORGAN FAILURE [None]
  - NEUROPATHY PERIPHERAL [None]
  - QUADRIPARESIS [None]
  - RENAL ISCHAEMIA [None]
  - RESPIRATORY FAILURE [None]
  - SEPSIS [None]
